FAERS Safety Report 16521663 (Version 3)
Quarter: 2019Q3

REPORT INFORMATION
  Report Type: Spontaneous
  Country: ES (occurrence: ES)
  Receive Date: 20190703
  Receipt Date: 20190729
  Transmission Date: 20191004
  Serious: Yes (Hospitalization, Other)
  Sender: FDA-Public Use
  Company Number: ES-TEVA-799072ROM

PATIENT
  Age: 81 Year
  Sex: Male

DRUGS (13)
  1. DULOXETINE. [Suspect]
     Active Substance: DULOXETINE
     Indication: DEPRESSION
     Dosage: 60 MG/12 HOURS
     Route: 065
  2. CALCIFEDIOL [Concomitant]
     Active Substance: CALCIFEDIOL
  3. HALOPERIDOL. [Suspect]
     Active Substance: HALOPERIDOL
     Indication: COGNITIVE DISORDER
     Dosage: 2 MG/ML 8 DROPS EVERY 24 HOURS
     Route: 065
  4. ATORVASTATIN [Concomitant]
     Active Substance: ATORVASTATIN
     Indication: ATRIAL FIBRILLATION
  5. ASPIRIN. [Concomitant]
     Active Substance: ASPIRIN
  6. ENALAPRIL [Suspect]
     Active Substance: ENALAPRIL
     Indication: HYPERTENSION
     Route: 065
  7. BISOPROLOL [Suspect]
     Active Substance: BISOPROLOL
     Indication: HYPERTENSION
     Route: 065
  8. DIGOXIN. [Suspect]
     Active Substance: DIGOXIN
     Indication: ATRIAL FIBRILLATION
     Route: 065
  9. LEVETIRACETAM. [Concomitant]
     Active Substance: LEVETIRACETAM
  10. OMEPRAZOLE. [Concomitant]
     Active Substance: OMEPRAZOLE
  11. DABIGATRAN ETEXILATE [Concomitant]
     Active Substance: DABIGATRAN ETEXILATE
     Indication: ATRIAL FIBRILLATION
  12. FESOTERODINE [Concomitant]
     Active Substance: FESOTERODINE
  13. CALCIUM CARBONATE. [Concomitant]
     Active Substance: CALCIUM CARBONATE

REACTIONS (2)
  - Serotonin syndrome [Unknown]
  - Hyperthermia [Unknown]

NARRATIVE: CASE EVENT DATE: 2015
